FAERS Safety Report 11148506 (Version 1)
Quarter: 2015Q2

REPORT INFORMATION
  Report Type: Spontaneous
  Country: CH (occurrence: FR)
  Receive Date: 20150529
  Receipt Date: 20150529
  Transmission Date: 20150821
  Serious: Yes (Hospitalization)
  Sender: FDA-Public Use
  Company Number: CH-LPDUSPRD-20150373

PATIENT
  Age: 40 Year
  Sex: Female

DRUGS (1)
  1. FERINJECT [Suspect]
     Active Substance: FERRIC CARBOXYMALTOSE
     Dosage: 1000 MG
     Route: 065
     Dates: start: 20150513

REACTIONS (4)
  - Blood pressure increased [Unknown]
  - Nausea [Unknown]
  - Photophobia [Unknown]
  - Headache [Unknown]

NARRATIVE: CASE EVENT DATE: 20150513
